FAERS Safety Report 20478328 (Version 4)
Quarter: 2022Q2

REPORT INFORMATION
  Report Type: Report from Study
  Country: US (occurrence: None)
  Receive Date: 20220216
  Receipt Date: 20220502
  Transmission Date: 20220721
  Serious: Yes (Hospitalization)
  Sender: FDA-Public Use
  Company Number: US-Merck Healthcare KGaA-9299214

PATIENT
  Sex: Female

DRUGS (2)
  1. MAVENCLAD [Suspect]
     Active Substance: CLADRIBINE
     Indication: Multiple sclerosis
     Dosage: YEAR ONE MONTH ONE THERAPY
     Route: 048
     Dates: start: 20210306
  2. MAVENCLAD [Suspect]
     Active Substance: CLADRIBINE
     Dosage: YEAR ONE MONTH TWO THERAPY
     Route: 048
     Dates: start: 20210407, end: 20210412

REACTIONS (13)
  - Liver operation [Not Recovered/Not Resolved]
  - Cholelithiasis [Not Recovered/Not Resolved]
  - Condition aggravated [Not Recovered/Not Resolved]
  - Post procedural complication [Unknown]
  - Post procedural infection [Unknown]
  - Procedural site reaction [Unknown]
  - Pulmonary haematoma [Unknown]
  - Gait disturbance [Unknown]
  - Anxiety [Unknown]
  - Insomnia [Unknown]
  - Back pain [Unknown]
  - Limb discomfort [Unknown]
  - Procedural pain [Not Recovered/Not Resolved]
